FAERS Safety Report 8226541-7 (Version None)
Quarter: 2012Q1

REPORT INFORMATION
  Report Type: 
  Country: None (occurrence: None)
  Receive Date: 20120322
  Receipt Date: 20120313
  Transmission Date: 20120608
  Serious: Yes (Hospitalization)
  Sender: FDA-Public Use
  Company Number: US-BIOGENIDEC-2011BI036973

PATIENT
  Age: 64 Year
  Sex: Male

DRUGS (1)
  1. AVONEX [Suspect]
     Indication: MULTIPLE SCLEROSIS
     Route: 030
     Dates: start: 20110419

REACTIONS (8)
  - EXCORIATION [None]
  - MUSCULAR WEAKNESS [None]
  - HYPOACUSIS [None]
  - FALL [None]
  - BLADDER DISORDER [None]
  - PAIN IN EXTREMITY [None]
  - JOINT INJURY [None]
  - MULTIPLE SCLEROSIS [None]
